FAERS Safety Report 5620060-X (Version None)
Quarter: 2008Q1

REPORT INFORMATION
  Report Type: 
  Country: None (occurrence: None)
  Receive Date: 20080208
  Receipt Date: 20080205
  Transmission Date: 20080703
  Serious: Yes (Other)
  Sender: FDA-Public Use
  Company Number: FR-ASTRAZENECA-2008CG00199

PATIENT
  Age: 61 Year
  Sex: Male

DRUGS (1)
  1. SYMBICORT [Suspect]
     Indication: CHRONIC OBSTRUCTIVE PULMONARY DISEASE
     Dosage: 320/9 MCG ONE INHALATION BID
     Route: 055
     Dates: start: 20040101

REACTIONS (1)
  - OSTEOPOROSIS [None]
